FAERS Safety Report 17963152 (Version 1)
Quarter: 2020Q2

REPORT INFORMATION
  Report Type: Spontaneous
  Country: US (occurrence: US)
  Receive Date: 20200630
  Receipt Date: 20200630
  Transmission Date: 20200714
  Serious: Yes (Other)
  Sender: FDA-Public Use
  Company Number: None

PATIENT
  Age: 73 Year
  Sex: Female
  Weight: 60.75 kg

DRUGS (12)
  1. ROSUVASTATIN. [Concomitant]
     Active Substance: ROSUVASTATIN
  2. PRESERVISION AREDS 2 [Concomitant]
     Active Substance: MINERALS\VITAMINS
  3. ASPIRIN. [Concomitant]
     Active Substance: ASPIRIN
  4. BUPROPION HCL ER 150MG 24HR TABLET [Suspect]
     Active Substance: BUPROPION HYDROCHLORIDE
     Indication: ANXIETY
     Dosage: ?          QUANTITY:1 TABLET(S);?
     Route: 048
     Dates: start: 20200612, end: 20200619
  5. ATIVAN [Concomitant]
     Active Substance: LORAZEPAM
  6. COENZYME Q10 [Concomitant]
     Active Substance: UBIDECARENONE
  7. AIRBOURNE WITH VITAMIN C [Concomitant]
  8. TYLENOL ARTHRITIS PAIN [Concomitant]
     Active Substance: ACETAMINOPHEN
  9. PREVACID [Concomitant]
     Active Substance: LANSOPRAZOLE
  10. RESTASIS [Concomitant]
     Active Substance: CYCLOSPORINE
  11. CENTRUM SILVER FOR WOMEN [Concomitant]
     Active Substance: MINERALS\VITAMINS
  12. LEXAPRO [Concomitant]
     Active Substance: ESCITALOPRAM OXALATE

REACTIONS (12)
  - Speech disorder [None]
  - Wrong technique in product usage process [None]
  - Middle insomnia [None]
  - Tremor [None]
  - Blood pressure increased [None]
  - Abdominal discomfort [None]
  - Disturbance in attention [None]
  - Diarrhoea [None]
  - Dry mouth [None]
  - Insomnia [None]
  - Nausea [None]
  - Dizziness [None]

NARRATIVE: CASE EVENT DATE: 20200614
